FAERS Safety Report 12556494 (Version 2)
Quarter: 2016Q3

REPORT INFORMATION
  Report Type: Spontaneous
  Country: SE (occurrence: SE)
  Receive Date: 20160714
  Receipt Date: 20160725
  Transmission Date: 20161109
  Serious: Yes (Death, Hospitalization)
  Sender: FDA-Public Use
  Company Number: SE-PFIZER INC-2016339325

PATIENT
  Age: 75 Year
  Sex: Male

DRUGS (1)
  1. REVATIO [Suspect]
     Active Substance: SILDENAFIL CITRATE
     Indication: PULMONARY HYPERTENSION
     Dosage: UNK

REACTIONS (2)
  - Cardiac arrest [Fatal]
  - Hypotension [Recovered/Resolved]
